FAERS Safety Report 5440702-1 (Version None)
Quarter: 2007Q3

REPORT INFORMATION
  Report Type: 
  Country: None (occurrence: None)
  Receive Date: 20070831
  Receipt Date: 20070823
  Transmission Date: 20080115
  Serious: Yes (Death)
  Sender: FDA-Public Use
  Company Number: IN-BOEHRINGER INGELHEIM PHARMACEUTICALS, INC.-2007-DE-04994GD

PATIENT
  Sex: Female

DRUGS (2)
  1. VIRAMUNE [Suspect]
     Indication: HUMAN IMMUNODEFICIENCY VIRUS TRANSMISSION
     Route: 064
  2. VIRAMUNE [Suspect]
     Indication: PROPHYLAXIS

REACTIONS (1)
  - NEONATAL ASPHYXIA [None]
